FAERS Safety Report 7888422-8 (Version None)
Quarter: 2011Q4

REPORT INFORMATION
  Report Type: 
  Country: None (occurrence: None)
  Receive Date: 20111103
  Receipt Date: 20111025
  Transmission Date: 20120403
  Serious: Yes (Other)
  Sender: FDA-Public Use
  Company Number: PHEH2011US08074

PATIENT
  Sex: Female
  Weight: 53.515 kg

DRUGS (2)
  1. RECLAST [Suspect]
     Indication: OSTEOPENIA
     Dosage: UNK UKN, UNK
     Route: 042
  2. TYLENOL-500 [Suspect]
     Indication: PAIN
     Dosage: UNK UKN, UNK

REACTIONS (11)
  - OEDEMA PERIPHERAL [None]
  - TOOTHACHE [None]
  - JOINT SWELLING [None]
  - FOOD INTOLERANCE [None]
  - ASTHENIA [None]
  - NAUSEA [None]
  - HEADACHE [None]
  - PAIN [None]
  - LIVER SCAN ABNORMAL [None]
  - WEIGHT DECREASED [None]
  - DEHYDRATION [None]
